FAERS Safety Report 20063602 (Version 2)
Quarter: 2021Q4

REPORT INFORMATION
  Report Type: Spontaneous
  Country: US (occurrence: US)
  Receive Date: 20211112
  Receipt Date: 20211122
  Transmission Date: 20220303
  Serious: Yes (Hospitalization, Disabling, Other)
  Sender: FDA-Public Use
  Company Number: US-009507513-1910USA005081

PATIENT
  Sex: Female

DRUGS (8)
  1. ZOSTAVAX [Suspect]
     Active Substance: VARICELLA-ZOSTER VIRUS STRAIN OKA/MERCK LIVE ANTIGEN
     Indication: Routine health maintenance
     Dosage: .65 MILLILITER
     Route: 058
     Dates: start: 20130918
  2. ZOSTAVAX [Suspect]
     Active Substance: VARICELLA-ZOSTER VIRUS STRAIN OKA/MERCK LIVE ANTIGEN
     Indication: Prophylaxis
  3. STERILE DILUENT (WATER) [Suspect]
     Active Substance: WATER
     Dosage: UNK
     Route: 058
     Dates: start: 20130918
  4. DAPSONE [Suspect]
     Active Substance: DAPSONE
     Dosage: UNK
  5. PRILOSEC [Concomitant]
     Active Substance: OMEPRAZOLE MAGNESIUM
     Indication: Gastrooesophageal reflux disease
     Dosage: 20 MILLIGRAM
     Dates: start: 200608
  6. LIPITOR [Concomitant]
     Active Substance: ATORVASTATIN CALCIUM
     Indication: Blood cholesterol increased
     Dosage: 10 MILLIGRAM
     Dates: start: 200712
  7. OMEPRAZOLE [Concomitant]
     Active Substance: OMEPRAZOLE
     Indication: Gastrooesophageal reflux disease
     Dosage: 20 MILLIGRAM
     Dates: start: 200712
  8. NITROGLYCERIN [Concomitant]
     Active Substance: NITROGLYCERIN
     Indication: Chest pain
     Dosage: 0.3 MILLIGRAM, PRN
     Dates: start: 201101

REACTIONS (19)
  - Angioedema [Unknown]
  - Blindness [Unknown]
  - Cataract [Unknown]
  - Superinfection fungal [Unknown]
  - Hypokalaemia [Unknown]
  - Hypoxia [Unknown]
  - Syncope [Unknown]
  - Urticarial vasculitis [Unknown]
  - Pain in extremity [Unknown]
  - Blood pressure increased [Unknown]
  - Eczema nummular [Unknown]
  - Immune system disorder [Unknown]
  - Methaemoglobinaemia [Unknown]
  - Migraine [Unknown]
  - Neck mass [Unknown]
  - Pulmonary mass [Unknown]
  - Skin fissures [Unknown]
  - Vocal cord disorder [Unknown]
  - Hypersensitivity [Unknown]

NARRATIVE: CASE EVENT DATE: 20130101
